FAERS Safety Report 11376659 (Version 1)
Quarter: 2015Q3

REPORT INFORMATION
  Report Type: Spontaneous
  Country: IT (occurrence: IT)
  Receive Date: 20150813
  Receipt Date: 20150813
  Transmission Date: 20151125
  Serious: Yes (Other)
  Sender: FDA-Public Use
  Company Number: IT-FRI-1000078843

PATIENT
  Age: 88 Year
  Sex: Male

DRUGS (9)
  1. BROMAZEPAM [Concomitant]
     Active Substance: BROMAZEPAM
  2. DELTACORTENE [Concomitant]
     Active Substance: PREDNISONE
  3. FOSTER [Concomitant]
     Active Substance: BECLOMETHASONE\FORMOTEROL
  4. MONUROL [Suspect]
     Active Substance: FOSFOMYCIN TROMETHAMINE
     Indication: DYSURIA
     Dosage: 1 DF
     Route: 048
     Dates: start: 20150728, end: 20150728
  5. ESOMEPRAZOLE SODIUM. [Concomitant]
     Active Substance: ESOMEPRAZOLE SODIUM
  6. LASIX [Concomitant]
     Active Substance: FUROSEMIDE
  7. KCL RETARD ZYMA [Concomitant]
     Active Substance: POTASSIUM CHLORIDE
  8. NADROPARINA CALCICA [Concomitant]
  9. LORAZEPAM. [Concomitant]
     Active Substance: LORAZEPAM

REACTIONS (1)
  - Urticaria [Recovering/Resolving]

NARRATIVE: CASE EVENT DATE: 20150728
